FAERS Safety Report 11418787 (Version 4)
Quarter: 2015Q4

REPORT INFORMATION
  Report Type: Spontaneous
  Country: FR (occurrence: FR)
  Receive Date: 20150826
  Receipt Date: 20151120
  Transmission Date: 20160304
  Serious: Yes (Other)
  Sender: FDA-Public Use
  Company Number: FR-AMGEN-FRASP2015085654

PATIENT
  Sex: Female

DRUGS (1)
  1. NEUPOGEN [Suspect]
     Active Substance: FILGRASTIM
     Indication: NEUTROPENIA
     Dosage: 480 MICROGRAM, 1 IN 1 DAY (S)
     Route: 065
     Dates: start: 20141024, end: 20150713

REACTIONS (2)
  - Pregnancy [Unknown]
  - Oligohydramnios [Recovered/Resolved]

NARRATIVE: CASE EVENT DATE: 20150713
